FAERS Safety Report 22181832 (Version 2)
Quarter: 2024Q1

REPORT INFORMATION
  Report Type: Spontaneous
  Country: FR (occurrence: FR)
  Receive Date: 20230406
  Receipt Date: 20240111
  Transmission Date: 20240410
  Serious: Yes (Death, Life-Threatening, Other)
  Sender: FDA-Public Use
  Company Number: FR-AMOMED-2023000192

PATIENT
  Age: 73 Year
  Sex: Male

DRUGS (5)
  1. SOLU-MEDROL [Suspect]
     Active Substance: METHYLPREDNISOLONE SODIUM SUCCINATE
     Dosage: 50 ML INFUSION SET
     Route: 042
  2. LANDIOLOL HYDROCHLORIDE [Suspect]
     Active Substance: LANDIOLOL HYDROCHLORIDE
     Indication: Atrial fibrillation
     Dosage: 300 MG
     Route: 042
     Dates: start: 20221230, end: 20221230
  3. LANDIOLOL HYDROCHLORIDE [Suspect]
     Active Substance: LANDIOLOL HYDROCHLORIDE
     Dosage: 7.8 UG/KG, FREQ:1 MIN;DORSAL DECUBITUS
     Route: 042
     Dates: start: 20230102, end: 20230103
  4. CORDARONE [Concomitant]
     Active Substance: AMIODARONE HYDROCHLORIDE
     Indication: Atrial fibrillation
     Dosage: 600 MG, 1X/DAY
     Route: 042
     Dates: start: 20221230
  5. FLECAINIDE [Concomitant]
     Active Substance: FLECAINIDE
     Indication: Atrial fibrillation
     Dosage: 100 MG, 1X/DAY
     Route: 048
     Dates: start: 20221230

REACTIONS (5)
  - Multiple organ dysfunction syndrome [Fatal]
  - Cardiac arrest [Recovered/Resolved]
  - Incorrect drug administration rate [Recovering/Resolving]
  - Bradycardia [Recovering/Resolving]
  - Product administration error [Unknown]

NARRATIVE: CASE EVENT DATE: 20230101
